FAERS Safety Report 26132899 (Version 2)
Quarter: 2025Q4

REPORT INFORMATION
  Report Type: Report from Study
  Country: MX (occurrence: MX)
  Receive Date: 20251209
  Receipt Date: 20251212
  Transmission Date: 20260117
  Serious: Yes (Hospitalization)
  Sender: ABBVIE
  Company Number: MX-ABBVIE-6578749

PATIENT
  Age: 40 Year
  Sex: Female
  Weight: 67 kg

DRUGS (2)
  1. RINVOQ [Suspect]
     Active Substance: UPADACITINIB
     Indication: Rheumatoid arthritis
     Dosage: 15 MG X 28 TABLETS, STRENGTH: 15 MG, FIRST ADMIN DATE: NOV 2025
     Route: 048
     Dates: end: 20251114
  2. RINVOQ [Suspect]
     Active Substance: UPADACITINIB
     Indication: Rheumatoid arthritis
     Dosage: 15 MG X 28 TABLETS, STRENGTH: 15 MG, LAST ADMIN DATE: NOV 2025
     Route: 048
     Dates: start: 20250611

REACTIONS (10)
  - Enteritis [Unknown]
  - Diarrhoea [Recovered/Resolved]
  - Abdominal pain [Not Recovered/Not Resolved]
  - Feeling abnormal [Unknown]
  - Haemorrhoids [Unknown]
  - Constipation [Not Recovered/Not Resolved]
  - Haemoglobin decreased [Unknown]
  - Stress [Unknown]
  - Bacterial infection [Unknown]
  - Viral infection [Unknown]

NARRATIVE: CASE EVENT DATE: 20250101
